FAERS Safety Report 12586798 (Version 1)
Quarter: 2016Q3

REPORT INFORMATION
  Report Type: Spontaneous
  Country: US (occurrence: None)
  Receive Date: 20160722
  Receipt Date: 20160722
  Transmission Date: 20161109
  Serious: Yes (Hospitalization)
  Sender: FDA-Public Use
  Company Number: None

PATIENT
  Age: 52 Year
  Sex: Female
  Weight: 43.09 kg

DRUGS (7)
  1. PHENERGAN [Suspect]
     Active Substance: PROMETHAZINE HYDROCHLORIDE
     Indication: NAUSEA
     Route: 030
     Dates: start: 20160107, end: 20160107
  2. PROMETHAZINE HCL [Concomitant]
     Active Substance: PROMETHAZINE HYDROCHLORIDE
  3. CITALOPRAM HYDROBROMIDE (CELEXA) [Concomitant]
  4. ACETAMINOPHEN\HYDROCODONE BITARTRATE [Concomitant]
     Active Substance: ACETAMINOPHEN\HYDROCODONE BITARTRATE
  5. CHLORZOXAZONE (PARAFON FORTE DSC) [Concomitant]
  6. PANTOPRAZOLE SODIUM. [Concomitant]
     Active Substance: PANTOPRAZOLE SODIUM
  7. TRAZODONE HYDROCHLORIDE. [Concomitant]
     Active Substance: TRAZODONE HYDROCHLORIDE

REACTIONS (10)
  - Contusion [None]
  - Pain in extremity [None]
  - Injection site abscess [None]
  - Asthenia [None]
  - Hypoaesthesia [None]
  - Injection site hypoaesthesia [None]
  - Musculoskeletal pain [None]
  - Osteomyelitis [None]
  - Wrong technique in product usage process [None]
  - Neuropathy peripheral [None]

NARRATIVE: CASE EVENT DATE: 20160107
